FAERS Safety Report 23982484 (Version 1)
Quarter: 2024Q2

REPORT INFORMATION
  Report Type: Spontaneous
  Country: US (occurrence: US)
  Receive Date: 20240617
  Receipt Date: 20240617
  Transmission Date: 20240716
  Serious: No
  Sender: FDA-Public Use
  Company Number: US-MYLANLABS-2024M1053782

PATIENT

DRUGS (2)
  1. LEVOTHYROXINE SODIUM [Suspect]
     Active Substance: LEVOTHYROXINE SODIUM
     Indication: Product used for unknown indication
     Dosage: UNK
     Route: 065
  2. LEVOTHYROXINE [Suspect]
     Active Substance: LEVOTHYROXINE\LEVOTHYROXINE SODIUM
     Indication: Product used for unknown indication
     Dosage: UNK
     Route: 065
     Dates: start: 20231221, end: 20240222

REACTIONS (6)
  - Oral mucosal blistering [Unknown]
  - Transient acantholytic dermatosis [Unknown]
  - Arthralgia [Unknown]
  - Oropharyngeal pain [Unknown]
  - Headache [Unknown]
  - Product quality issue [Unknown]
